FAERS Safety Report 7768887-2 (Version None)
Quarter: 2011Q3

REPORT INFORMATION
  Report Type: 
  Country: None (occurrence: None)
  Receive Date: 20110922
  Receipt Date: 20110114
  Transmission Date: 20111222
  Serious: No
  Sender: FDA-Public Use
  Company Number: US-ASTRAZENECA-2010SE16923

PATIENT
  Age: 57 Year
  Sex: Female
  Weight: 85.3 kg

DRUGS (10)
  1. SEROQUEL [Suspect]
     Indication: INSOMNIA
     Route: 048
     Dates: start: 20091101
  2. LEXAPRO [Concomitant]
     Indication: SLEEP DISORDER
     Route: 048
  3. HYDROCHLOROTHIAZIDE [Concomitant]
     Indication: BLOOD PRESSURE
     Route: 048
  4. SEROQUEL [Suspect]
     Route: 048
     Dates: end: 20100501
  5. SEROQUEL [Suspect]
     Route: 048
     Dates: start: 20110112
  6. XANAX [Concomitant]
     Indication: INSOMNIA
     Route: 048
  7. XANAX [Concomitant]
     Route: 048
  8. XANAX [Concomitant]
     Indication: SLEEP DISORDER
     Route: 048
  9. XANAX [Concomitant]
     Route: 048
  10. DIOVAN [Concomitant]
     Indication: BLOOD PRESSURE
     Route: 048

REACTIONS (7)
  - INSOMNIA [None]
  - FEELING ABNORMAL [None]
  - INCREASED APPETITE [None]
  - WEIGHT INCREASED [None]
  - BLOOD GLUCOSE INCREASED [None]
  - THERAPEUTIC RESPONSE UNEXPECTED [None]
  - WRONG TECHNIQUE IN DRUG USAGE PROCESS [None]
